FAERS Safety Report 23684967 (Version 3)
Quarter: 2025Q4

REPORT INFORMATION
  Report Type: Spontaneous
  Country: US (occurrence: US)
  Receive Date: 20240328
  Receipt Date: 20251223
  Transmission Date: 20260117
  Serious: Yes (Hospitalization)
  Sender: MERCK SHARP & DOHME LLC
  Company Number: US-009507513-2403USA008638

PATIENT
  Age: 73 Year
  Sex: Male
  Weight: 74.1 kg

DRUGS (1)
  1. PEMBROLIZUMAB [Suspect]
     Active Substance: PEMBROLIZUMAB
     Indication: Squamous cell carcinoma of head and neck
     Dosage: TIME INTERVAL: TOTAL: DOSE DESCRIPTION : 200 MILLIGRAM, ONCE?DAILY DOSE : 200 MILLIGRAM?REGIMEN D...
     Route: 042
     Dates: start: 20240124, end: 20240124

REACTIONS (3)
  - Diabetic ketoacidosis [Recovered/Resolved]
  - Myocarditis [Recovered/Resolved]
  - Hyperglycaemia [Recovered/Resolved]

NARRATIVE: CASE EVENT DATE: 20240213
